FAERS Safety Report 14656791 (Version 1)
Quarter: 2018Q1

REPORT INFORMATION
  Report Type: Spontaneous
  Country: US (occurrence: US)
  Receive Date: 20180319
  Receipt Date: 20180319
  Transmission Date: 20180509
  Serious: No
  Sender: FDA-Public Use
  Company Number: US-SA-2017SA071287

PATIENT
  Age: 3 Year
  Sex: Male

DRUGS (1)
  1. NASACORT ALLERGY 24HR [Suspect]
     Active Substance: TRIAMCINOLONE ACETONIDE
     Indication: SEASONAL ALLERGY
     Dosage: 0.055 MG/ PUFF, 1 SQT EA?NOSTRIL QD DOSE:1 UNIT(S)
     Route: 045
     Dates: start: 20170410

REACTIONS (2)
  - Acne [Recovering/Resolving]
  - Blister [Recovering/Resolving]
